FAERS Safety Report 9322888 (Version 1)
Quarter: 2013Q2

REPORT INFORMATION
  Report Type: Spontaneous
  Country: US (occurrence: US)
  Receive Date: 20130603
  Receipt Date: 20130603
  Transmission Date: 20140414
  Serious: Yes (Hospitalization)
  Sender: FDA-Public Use
  Company Number: US-BRISTOL-MYERS SQUIBB COMPANY-18895961

PATIENT
  Age: 50 Year
  Sex: Male

DRUGS (1)
  1. SPRYCEL [Suspect]
     Indication: ACUTE LYMPHOCYTIC LEUKAEMIA
     Dosage: 25FEB2013?MOSE RECENT:19APR,02MAY13?CYC:1-14
     Route: 048
     Dates: start: 20130120

REACTIONS (1)
  - Autoimmune haemolytic anaemia [Unknown]
